FAERS Safety Report 18152482 (Version 1)
Quarter: 2020Q3

REPORT INFORMATION
  Report Type: Spontaneous
  Country: US (occurrence: US)
  Receive Date: 20200814
  Receipt Date: 20200814
  Transmission Date: 20201103
  Serious: No
  Sender: FDA-Public Use
  Company Number: US-TEVA-2020-US-1813744

PATIENT
  Age: 65 Year
  Sex: Female

DRUGS (3)
  1. SYMBICORT [Suspect]
     Active Substance: BUDESONIDE\FORMOTEROL FUMARATE DIHYDRATE
     Dosage: STARTED A WEEK AGO
  2. PROAIR RESPICLICK [Suspect]
     Active Substance: ALBUTEROL SULFATE
     Indication: ASTHMA
     Dosage: STARTED 2 YEARS AGO FOR ASTHMA/FOR USE EVERY 4 HOURS OR AS NEEDED AND 30 MINUTES BEFORE EXERCISE
     Route: 065
     Dates: end: 2020
  3. SYMBICORT [Suspect]
     Active Substance: BUDESONIDE\FORMOTEROL FUMARATE DIHYDRATE
     Indication: MUSCLE SPASMS
     Dosage: USED FOR 1 YEAR
     Route: 065

REACTIONS (10)
  - Pain [Unknown]
  - Gait disturbance [Unknown]
  - Treatment noncompliance [Unknown]
  - Extra dose administered [Unknown]
  - Drug ineffective [Unknown]
  - Withdrawal syndrome [Unknown]
  - Cough [Unknown]
  - Bone pain [Unknown]
  - Insomnia [Unknown]
  - Muscle spasms [Unknown]

NARRATIVE: CASE EVENT DATE: 2020
